FAERS Safety Report 11431678 (Version 3)
Quarter: 2015Q3

REPORT INFORMATION
  Report Type: Spontaneous
  Country: JP (occurrence: JP)
  Receive Date: 20150828
  Receipt Date: 20150928
  Transmission Date: 20151125
  Serious: Yes (Life-Threatening, Hospitalization)
  Sender: FDA-Public Use
  Company Number: JP-009507513-1508JPN012645

PATIENT
  Age: 67 Year
  Sex: Male
  Weight: 58 kg

DRUGS (9)
  1. NOVORAPID [Concomitant]
     Active Substance: INSULIN ASPART
     Indication: DIABETES MELLITUS
     Dosage: DAILY DOSE: 30(UNIT: UNDER1000UNIT); FREQUECY: UNKNOWN
     Route: 051
     Dates: start: 201203, end: 20150817
  2. HALCION [Concomitant]
     Active Substance: TRIAZOLAM
     Indication: INSOMNIA
     Dosage: TOTAL DAILY DOSE: 0.25 MG, DIVIDED DOSE FREQUENCY UNKNOWN
     Route: 048
     Dates: start: 201002, end: 20150901
  3. JANUVIA [Suspect]
     Active Substance: SITAGLIPTIN PHOSPHATE
     Indication: DIABETES MELLITUS
     Dosage: 50 MG, QD
     Route: 048
     Dates: start: 201406, end: 20150817
  4. AMLODIPINE [Concomitant]
     Active Substance: AMLODIPINE BESYLATE
     Indication: HYPERTENSION
     Dosage: TOTAL DAILY DOSE: 5 MG; DIVIDED DOSE FREQUENCY UNKNOWN
     Route: 048
     Dates: start: 200804, end: 20150901
  5. OLMETEC [Suspect]
     Active Substance: OLMESARTAN MEDOXOMIL
     Indication: HYPERTENSION
     Dosage: TOTAL DAILY DOSE: 10 MG; DIVIDED DOSE FREQUENCY UNKNOWN
     Route: 048
     Dates: start: 201406, end: 20150817
  6. ATORVASTATIN [Suspect]
     Active Substance: ATORVASTATIN
     Indication: LIPIDS ABNORMAL
     Dosage: 5 MG, QD
     Route: 048
     Dates: start: 201202, end: 20150817
  7. PROPIVERINE HYDROCHLORIDE [Suspect]
     Active Substance: PROPIVERINE HYDROCHLORIDE
     Indication: BENIGN PROSTATIC HYPERPLASIA
     Dosage: 20 MG, QD
     Route: 048
     Dates: start: 201412, end: 20150817
  8. EURODIN (ESTAZOLAM) [Concomitant]
     Indication: INSOMNIA
     Dosage: TOTAL DAILY DOSE: 1 MG; DIVIDED DOSE FREQUENCY UNKNOWN
     Route: 048
     Dates: start: 201003, end: 20150901
  9. SORENTMIN (BROTIZOLAM) [Concomitant]
     Indication: INSOMNIA
     Dosage: TOTAL DAILY DOSE: 0.25 MG; DIVIDED DOSE FREQUENCY UNKNOWN
     Route: 048
     Dates: start: 201001, end: 20150901

REACTIONS (2)
  - Rhabdomyolysis [Recovered/Resolved]
  - Acute kidney injury [Recovered/Resolved]

NARRATIVE: CASE EVENT DATE: 20150817
